FAERS Safety Report 8368421-2 (Version None)
Quarter: 2012Q2

REPORT INFORMATION
  Report Type: 
  Country: None (occurrence: None)
  Receive Date: 20120517
  Receipt Date: 20120507
  Transmission Date: 20120825
  Serious: Yes (Other)
  Sender: FDA-Public Use
  Company Number: US-ELI_LILLY_AND_COMPANY-US201205003721

PATIENT
  Age: 91 Year
  Sex: Male

DRUGS (1)
  1. FORTEO [Suspect]
     Indication: OSTEOPOROSIS

REACTIONS (5)
  - LOSS OF CONSCIOUSNESS [None]
  - SCRATCH [None]
  - FALL [None]
  - MUSCLE TWITCHING [None]
  - SKIN DISORDER [None]
